FAERS Safety Report 14603594 (Version 1)
Quarter: 2018Q1

REPORT INFORMATION
  Report Type: Spontaneous
  Country: FR (occurrence: FR)
  Receive Date: 20180306
  Receipt Date: 20180306
  Transmission Date: 20180509
  Serious: Yes (Other)
  Sender: FDA-Public Use
  Company Number: FR-AMGEN-FRASP2018027677

PATIENT
  Age: 78 Year
  Sex: Female

DRUGS (2)
  1. ARANESP [Suspect]
     Active Substance: DARBEPOETIN ALFA
     Indication: PRODUCT USED FOR UNKNOWN INDICATION
     Dosage: 60 MUG, UNK
     Route: 065
     Dates: start: 2012
  2. ARANESP [Suspect]
     Active Substance: DARBEPOETIN ALFA
     Dosage: 40 UNK, UNK
     Route: 065

REACTIONS (3)
  - Sepsis [Unknown]
  - Injection site pain [Unknown]
  - Pyelonephritis [Unknown]

NARRATIVE: CASE EVENT DATE: 2016
